FAERS Safety Report 13843555 (Version 1)
Quarter: 2017Q3

REPORT INFORMATION
  Report Type: Other
  Country: CN (occurrence: CN)
  Receive Date: 20170808
  Receipt Date: 20170808
  Transmission Date: 20171127
  Serious: Yes (Other)
  Sender: FDA-Public Use
  Company Number: CN-GE HEALTHCARE LIFE SCIENCES-2017CSU002377

PATIENT

DRUGS (1)
  1. OMNIPAQUE [Suspect]
     Active Substance: IOHEXOL
     Indication: PRODUCT USED FOR UNKNOWN INDICATION
     Dosage: 70 G, SINGLE
     Route: 013
     Dates: start: 20170412, end: 20170412

REACTIONS (2)
  - Chills [Recovered/Resolved]
  - Temperature intolerance [Recovered/Resolved]

NARRATIVE: CASE EVENT DATE: 20170412
